FAERS Safety Report 7529087-4 (Version None)
Quarter: 2011Q2

REPORT INFORMATION
  Report Type: 
  Country: None (occurrence: None)
  Receive Date: 20110607
  Receipt Date: 20110527
  Transmission Date: 20111010
  Serious: Yes (Hospitalization, Other)
  Sender: FDA-Public Use
  Company Number: US-SANOFI-AVENTIS-2011SA034315

PATIENT
  Age: 90 Year
  Sex: Male

DRUGS (11)
  1. WARFARIN SODIUM [Concomitant]
     Route: 065
  2. SOLOSTAR [Suspect]
     Indication: TYPE 2 DIABETES MELLITUS
  3. FUROSEMIDE [Concomitant]
     Route: 065
  4. ISOSORBIDE MONONITRATE [Concomitant]
     Route: 065
  5. POTASSIUM CHLORIDE [Concomitant]
     Route: 065
  6. DIGOXIN [Concomitant]
     Route: 065
  7. AMOXICILLIN [Concomitant]
     Route: 065
  8. SIMVASTATIN [Concomitant]
     Route: 065
     Dates: start: 20110101
  9. METFORMIN HCL [Concomitant]
     Route: 065
  10. DILTIAZEM [Concomitant]
     Route: 065
  11. LANTUS [Suspect]
     Indication: TYPE 2 DIABETES MELLITUS
     Dosage: DOSE:22 UNIT(S)
     Route: 058

REACTIONS (3)
  - ARTERIAL BYPASS OPERATION [None]
  - MYOCARDIAL INFARCTION [None]
  - SKIN ULCER [None]
